FAERS Safety Report 16165342 (Version 1)
Quarter: 2019Q2

REPORT INFORMATION
  Report Type: Spontaneous
  Country: IT (occurrence: IT)
  Receive Date: 20190405
  Receipt Date: 20190405
  Transmission Date: 20190711
  Serious: Yes (Other)
  Sender: FDA-Public Use
  Company Number: IT-ASCEND THERAPEUTICS-2065411

PATIENT
  Age: 29 Year
  Sex: Female

DRUGS (3)
  1. ACETYLSALICYCLIC ACID,?INDICATION FOR USE: THROMBOEMBOLISM PROPHYLAXIS [Concomitant]
  2. PROGESTIN (PROGESTERONE), ?INDICATION FOR USE: HORMONE REPLACEMENT THE [Suspect]
     Active Substance: PROGESTERONE
     Route: 048
  3. ESTROGEL [Suspect]
     Active Substance: ESTRADIOL
     Indication: HORMONE REPLACEMENT THERAPY
     Route: 048

REACTIONS (2)
  - Blindness [Unknown]
  - Visual acuity reduced [Unknown]
